FAERS Safety Report 9506304 (Version 1)
Quarter: 2013Q1

REPORT INFORMATION
  Report Type: Spontaneous
  Country: US (occurrence: None)
  Receive Date: 20130301
  Receipt Date: 20130301
  Transmission Date: 20140127
  Serious: Yes (Hospitalization, Other)
  Sender: FDA-Public Use
  Company Number: RB-39620-2012

PATIENT
  Age: 72 Year
  Sex: Male

DRUGS (5)
  1. SUBOXONE [Suspect]
     Indication: DRUG DEPENDENCE
     Route: 060
     Dates: start: 201204
  2. METFORMIN [Concomitant]
  3. LISINOPRIL [Concomitant]
  4. CARDIZEM [Concomitant]
  5. XANAX [Concomitant]

REACTIONS (3)
  - Dyspnoea [None]
  - Chest pain [None]
  - Oedema peripheral [None]
